FAERS Safety Report 11165647 (Version 1)
Quarter: 2015Q2

REPORT INFORMATION
  Report Type: Spontaneous
  Country: US (occurrence: US)
  Receive Date: 20150604
  Receipt Date: 20150604
  Transmission Date: 20150821
  Serious: No
  Sender: FDA-Public Use
  Company Number: US-BAYER-2015-300671

PATIENT
  Age: 83 Year
  Sex: Male
  Weight: 77.98 kg

DRUGS (6)
  1. VITAMIN E BIOEXTRA [Concomitant]
     Dosage: UNK
  2. FISH OIL [Concomitant]
     Active Substance: FISH OIL
     Dosage: UNK
  3. TURMERIC [Concomitant]
     Active Substance: TURMERIC
     Dosage: UNK
  4. MIRALAX [Suspect]
     Active Substance: POLYETHYLENE GLYCOL 3350
     Indication: CONSTIPATION
     Dosage: 1DOSE, PRN
     Route: 048
  5. VITAMIN D [COLECALCIFEROL] [Concomitant]
     Dosage: UNK
  6. MULTI-VIT [Concomitant]
     Active Substance: VITAMINS
     Dosage: UNK

REACTIONS (1)
  - Incorrect drug administration duration [None]
